FAERS Safety Report 17354789 (Version 1)
Quarter: 2020Q1

REPORT INFORMATION
  Report Type: Spontaneous
  Country: NZ (occurrence: NZ)
  Receive Date: 20200131
  Receipt Date: 20200131
  Transmission Date: 20200409
  Serious: Yes (Other)
  Sender: FDA-Public Use
  Company Number: NVSC2020NZ024349

PATIENT

DRUGS (2)
  1. ARTEMISIA ARGYI LEAF\DENDRANTHEMA INDICUM FLOWER\MENTHA ARVENSIS LEAF [Suspect]
     Active Substance: ARTEMISIA ARGYI LEAF\DENDRANTHEMA INDICUM FLOWER\MENTHA ARVENSIS LEAF
     Indication: ARTHRALGIA
     Dosage: UNK
     Route: 065
  2. DICLOFENAC [Suspect]
     Active Substance: DICLOFENAC
     Indication: PRODUCT USED FOR UNKNOWN INDICATION
     Dosage: UNK
     Route: 065

REACTIONS (1)
  - Hepatotoxicity [Unknown]
